FAERS Safety Report 14091998 (Version 2)
Quarter: 2017Q4

REPORT INFORMATION
  Report Type: Spontaneous
  Country: US (occurrence: US)
  Receive Date: 20171016
  Receipt Date: 20171229
  Transmission Date: 20180321
  Serious: Yes (Other)
  Sender: FDA-Public Use
  Company Number: US-PFIZER INC-2017441900

PATIENT
  Age: 54 Year
  Sex: Female
  Weight: 85.2 kg

DRUGS (2)
  1. XELJANZ XR [Suspect]
     Active Substance: TOFACITINIB CITRATE
     Indication: RHEUMATOID ARTHRITIS
     Dosage: 11 MG, DAILY
     Route: 048
     Dates: start: 201708
  2. OFEV [Concomitant]
     Active Substance: NINTEDANIB
     Dosage: UNK

REACTIONS (8)
  - Infectious colitis [Unknown]
  - Nausea [Unknown]
  - Abdominal pain upper [Unknown]
  - Cough [Unknown]
  - Diarrhoea [Unknown]
  - Productive cough [Unknown]
  - Haematemesis [Unknown]
  - Dyspnoea [Unknown]
